FAERS Safety Report 8529530-8 (Version None)
Quarter: 2012Q3

REPORT INFORMATION
  Report Type: 
  Country: None (occurrence: None)
  Receive Date: 20120710
  Receipt Date: 20120703
  Transmission Date: 20120928
  Serious: Yes (Other)
  Sender: FDA-Public Use
  Company Number: 2011029774

PATIENT
  Age: 24 Month
  Sex: Male
  Weight: 14.5151 kg

DRUGS (10)
  1. HIZENTRA [Suspect]
     Indication: HYPOGLOBULINAEMIA
     Dosage: SEE IMAGE
     Route: 058
     Dates: start: 20110428
  2. HIZENTRA [Suspect]
  3. LIDOCAINE/PRILOCAINE (EMLA) [Concomitant]
  4. EIP-PEN JR (EPINEPHRINE) [Concomitant]
  5. FLOVENT [Concomitant]
  6. LMX (LIDOCAINE) [Concomitant]
  7. PHENOBARB (PHENOBARBITAL SODIUM) [Suspect]
  8. PREVACID [Concomitant]
  9. DIPHENHYDRAMINE HCL [Concomitant]
  10. ALBUTEROL [Concomitant]

REACTIONS (7)
  - FURUNCLE [None]
  - SUBCUTANEOUS ABSCESS [None]
  - VOMITING [None]
  - CONVULSION [None]
  - ABSCESS LIMB [None]
  - DECREASED APPETITE [None]
  - CONDITION AGGRAVATED [None]
